FAERS Safety Report 12647726 (Version 1)
Quarter: 2016Q3

REPORT INFORMATION
  Report Type: Other
  Country: GB (occurrence: GB)
  Receive Date: 20160812
  Receipt Date: 20160812
  Transmission Date: 20161109
  Serious: Yes (Other)
  Sender: FDA-Public Use
  Company Number: GB-HQ SPECIALTY-GB-2016INT000767

PATIENT
  Sex: Female

DRUGS (2)
  1. METHOTREXATE SODIUM. [Suspect]
     Active Substance: METHOTREXATE SODIUM
     Indication: PRODUCT USED FOR UNKNOWN INDICATION
     Dosage: UNK
     Route: 065
  2. ENBREL [Suspect]
     Active Substance: ETANERCEPT
     Indication: PRODUCT USED FOR UNKNOWN INDICATION
     Dosage: 7.1429 MG (50 MG,1 IN 1 W)
     Route: 058

REACTIONS (6)
  - Arrhythmia [Unknown]
  - Hypertension [Unknown]
  - Dental caries [Unknown]
  - Disease progression [Unknown]
  - Blister [Unknown]
  - Chest pain [Unknown]
